FAERS Safety Report 20005255 (Version 1)
Quarter: 2021Q4

REPORT INFORMATION
  Report Type: Report from Study
  Country: None (occurrence: FR)
  Receive Date: 20211028
  Receipt Date: 20211028
  Transmission Date: 20220303
  Serious: Yes (Death, Congenital Anomaly, Other)
  Sender: FDA-Public Use
  Company Number: FR-GILEAD-2021-0552956

PATIENT
  Sex: Male

DRUGS (3)
  1. RITONAVIR [Suspect]
     Active Substance: RITONAVIR
     Indication: Maternal exposure timing unspecified
     Route: 064
  2. DARUNAVIR [Suspect]
     Active Substance: DARUNAVIR
     Indication: Maternal exposure timing unspecified
     Route: 064
  3. EMTRICITABINE\TENOFOVIR DISOPROXIL FUMARATE [Suspect]
     Active Substance: EMTRICITABINE\TENOFOVIR DISOPROXIL FUMARATE
     Indication: Maternal exposure timing unspecified
     Route: 064

REACTIONS (7)
  - Death [Fatal]
  - Heart disease congenital [Not Recovered/Not Resolved]
  - Trisomy 21 [Not Recovered/Not Resolved]
  - Gene mutation [Not Recovered/Not Resolved]
  - Pulmonary hypertension [Not Recovered/Not Resolved]
  - Foetal exposure during pregnancy [Unknown]
  - Premature baby [Unknown]
